FAERS Safety Report 8045223-8 (Version None)
Quarter: 2012Q1

REPORT INFORMATION
  Report Type: 
  Country: None (occurrence: None)
  Receive Date: 20120113
  Receipt Date: 20120112
  Transmission Date: 20120608
  Serious: Yes (Hospitalization)
  Sender: FDA-Public Use
  Company Number: US-PFIZER INC-2012009898

PATIENT
  Sex: Male
  Weight: 68 kg

DRUGS (5)
  1. TRAZODONE [Concomitant]
     Indication: BIPOLAR DISORDER
     Dosage: UNK
  2. EFFEXOR [Concomitant]
     Indication: BIPOLAR DISORDER
     Dosage: UNK
  3. LYRICA [Concomitant]
     Indication: NERVE INJURY
     Dosage: UNK
  4. CHANTIX [Suspect]
     Indication: SMOKING CESSATION THERAPY
     Dosage: 0.5 MG, 1X/DAY
     Route: 048
     Dates: start: 20070101, end: 20071211
  5. LAMICTAL [Concomitant]
     Indication: BIPOLAR DISORDER
     Dosage: UNK

REACTIONS (3)
  - LUNG DISORDER [None]
  - PNEUMONIA [None]
  - PLEURAL EFFUSION [None]
